FAERS Safety Report 9169478 (Version 1)
Quarter: 2013Q1

REPORT INFORMATION
  Report Type: Spontaneous
  Country: PH (occurrence: PH)
  Receive Date: 20130318
  Receipt Date: 20130318
  Transmission Date: 20140127
  Serious: Yes (Other)
  Sender: FDA-Public Use
  Company Number: PH-009507513-1209PHL007768

PATIENT
  Sex: 0

DRUGS (1)
  1. VYTORIN [Suspect]
     Dosage: UNK
     Route: 048

REACTIONS (3)
  - Aortic valve stenosis [Unknown]
  - Stent placement [Unknown]
  - Cardiac operation [Unknown]
